FAERS Safety Report 25095041 (Version 2)
Quarter: 2025Q2

REPORT INFORMATION
  Report Type: Spontaneous
  Country: CA (occurrence: CA)
  Receive Date: 20250319
  Receipt Date: 20250623
  Transmission Date: 20250717
  Serious: Yes (Death, Life-Threatening, Hospitalization, Disabling, Congenital Anomaly, Other)
  Sender: Haleon PLC
  Company Number: CA-SANDOZ-SDZ2025CA016298

PATIENT
  Age: 40 Year
  Sex: Female

DRUGS (383)
  1. VOLTAREN [Suspect]
     Active Substance: DICLOFENAC SODIUM
     Indication: Product used for unknown indication
  2. VOLTAREN [Suspect]
     Active Substance: DICLOFENAC SODIUM
  3. ZINC [Suspect]
     Active Substance: ZINC
     Indication: Rheumatoid arthritis
  4. ZINC [Suspect]
     Active Substance: ZINC
  5. MEGLUMINE [Suspect]
     Active Substance: MEGLUMINE
     Indication: Rheumatoid arthritis
  6. MEGLUMINE [Suspect]
     Active Substance: MEGLUMINE
  7. METHYLPREDNISOLONE ACETATE [Suspect]
     Active Substance: METHYLPREDNISOLONE ACETATE
     Indication: Product used for unknown indication
  8. METHYLPREDNISOLONE ACETATE [Suspect]
     Active Substance: METHYLPREDNISOLONE ACETATE
  9. METHYLPREDNISOLONE ACETATE [Suspect]
     Active Substance: METHYLPREDNISOLONE ACETATE
  10. GOLD SODIUM THIOMALATE [Suspect]
     Active Substance: GOLD SODIUM THIOMALATE
     Indication: Product used for unknown indication
  11. GOLD SODIUM THIOMALATE [Suspect]
     Active Substance: GOLD SODIUM THIOMALATE
  12. CELECOXIB [Suspect]
     Active Substance: CELECOXIB
     Indication: Product used for unknown indication
     Dosage: 2 DOSAGE FORM, QD, ORAL USE
  13. CELECOXIB [Suspect]
     Active Substance: CELECOXIB
     Route: 050
  14. CELECOXIB [Suspect]
     Active Substance: CELECOXIB
     Dosage: 1 DOSAGE FORM, Q24H
     Route: 050
  15. CELECOXIB [Suspect]
     Active Substance: CELECOXIB
  16. CETIRIZINE HYDROCHLORIDE [Suspect]
     Active Substance: CETIRIZINE HYDROCHLORIDE
     Indication: Product used for unknown indication
     Route: 050
  17. CETIRIZINE HYDROCHLORIDE [Suspect]
     Active Substance: CETIRIZINE HYDROCHLORIDE
     Indication: Rheumatoid arthritis
  18. CETIRIZINE HYDROCHLORIDE [Suspect]
     Active Substance: CETIRIZINE HYDROCHLORIDE
  19. CETIRIZINE HYDROCHLORIDE [Suspect]
     Active Substance: CETIRIZINE HYDROCHLORIDE
  20. CETIRIZINE HYDROCHLORIDE [Suspect]
     Active Substance: CETIRIZINE HYDROCHLORIDE
  21. CETIRIZINE HYDROCHLORIDE [Suspect]
     Active Substance: CETIRIZINE HYDROCHLORIDE
     Route: 050
  22. CETIRIZINE HYDROCHLORIDE [Suspect]
     Active Substance: CETIRIZINE HYDROCHLORIDE
  23. CETIRIZINE HYDROCHLORIDE [Suspect]
     Active Substance: CETIRIZINE HYDROCHLORIDE
  24. REMICADE [Suspect]
     Active Substance: INFLIXIMAB
     Indication: Product used for unknown indication
     Dosage: 500 MG, Q24H
  25. REMICADE [Suspect]
     Active Substance: INFLIXIMAB
     Indication: Rheumatoid arthritis
     Dosage: 500 MG, Q12H
  26. REMICADE [Suspect]
     Active Substance: INFLIXIMAB
  27. REMICADE [Suspect]
     Active Substance: INFLIXIMAB
  28. REMICADE [Suspect]
     Active Substance: INFLIXIMAB
  29. REMICADE [Suspect]
     Active Substance: INFLIXIMAB
  30. REMICADE [Suspect]
     Active Substance: INFLIXIMAB
  31. REMICADE [Suspect]
     Active Substance: INFLIXIMAB
  32. MINOCYCLINE HYDROCHLORIDE [Suspect]
     Active Substance: MINOCYCLINE HYDROCHLORIDE
     Indication: Rheumatoid arthritis
  33. MINOCYCLINE HYDROCHLORIDE [Suspect]
     Active Substance: MINOCYCLINE HYDROCHLORIDE
  34. FOLIC ACID [Suspect]
     Active Substance: FOLIC ACID
     Indication: Rheumatoid arthritis
     Route: 050
  35. FOLIC ACID [Suspect]
     Active Substance: FOLIC ACID
     Indication: Product used for unknown indication
  36. FOLIC ACID [Suspect]
     Active Substance: FOLIC ACID
  37. FOLIC ACID [Suspect]
     Active Substance: FOLIC ACID
  38. FOLIC ACID [Suspect]
     Active Substance: FOLIC ACID
     Route: 050
  39. FOLIC ACID [Suspect]
     Active Substance: FOLIC ACID
  40. FOLIC ACID [Suspect]
     Active Substance: FOLIC ACID
     Route: 050
  41. FOLIC ACID [Suspect]
     Active Substance: FOLIC ACID
     Route: 050
  42. FOLIC ACID [Suspect]
     Active Substance: FOLIC ACID
  43. VITAMIN A [Suspect]
     Active Substance: VITAMIN A
     Indication: Product used for unknown indication
  44. HYDROCORTISONE [Suspect]
     Active Substance: HYDROCORTISONE
     Indication: Rheumatoid arthritis
  45. HYDROCORTISONE [Suspect]
     Active Substance: HYDROCORTISONE
     Indication: Product used for unknown indication
  46. CHLORHEXIDINE GLUCONATE [Suspect]
     Active Substance: CHLORHEXIDINE GLUCONATE
     Indication: Product used for unknown indication
  47. CHLORHEXIDINE GLUCONATE [Suspect]
     Active Substance: CHLORHEXIDINE GLUCONATE
  48. CHLORHEXIDINE GLUCONATE [Suspect]
     Active Substance: CHLORHEXIDINE GLUCONATE
  49. CHLORHEXIDINE GLUCONATE [Suspect]
     Active Substance: CHLORHEXIDINE GLUCONATE
  50. MINOCYCLINE [Suspect]
     Active Substance: MINOCYCLINE HYDROCHLORIDE
     Indication: Rheumatoid arthritis
  51. MINOCYCLINE [Suspect]
     Active Substance: MINOCYCLINE HYDROCHLORIDE
     Indication: Product used for unknown indication
  52. MINOCYCLINE [Suspect]
     Active Substance: MINOCYCLINE HYDROCHLORIDE
  53. METHOTREXATE [Concomitant]
     Active Substance: METHOTREXATE
     Indication: Product used for unknown indication
  54. METHOTREXATE [Concomitant]
     Active Substance: METHOTREXATE
  55. DESOXIMETASONE [Suspect]
     Active Substance: DESOXIMETASONE
     Indication: Product used for unknown indication
     Route: 050
  56. DESOXIMETASONE [Suspect]
     Active Substance: DESOXIMETASONE
     Indication: Rheumatoid arthritis
  57. DESOXIMETASONE [Suspect]
     Active Substance: DESOXIMETASONE
  58. DESOXIMETASONE [Suspect]
     Active Substance: DESOXIMETASONE
     Route: 050
  59. DESOXIMETASONE [Suspect]
     Active Substance: DESOXIMETASONE
     Route: 050
  60. DESOXIMETASONE [Suspect]
     Active Substance: DESOXIMETASONE
     Route: 050
  61. DESOXIMETASONE [Suspect]
     Active Substance: DESOXIMETASONE
     Route: 050
  62. INFLIXIMAB [Suspect]
     Active Substance: INFLIXIMAB
     Indication: Rheumatoid arthritis
     Route: 050
  63. INFLIXIMAB [Suspect]
     Active Substance: INFLIXIMAB
     Route: 050
  64. INFLIXIMAB [Suspect]
     Active Substance: INFLIXIMAB
     Route: 050
  65. ADALIMUMAB [Suspect]
     Active Substance: ADALIMUMAB
     Indication: Rheumatoid arthritis
  66. ADALIMUMAB [Suspect]
     Active Substance: ADALIMUMAB
     Dosage: 40 MG, Q2W, SOLUTION FOR INJECTION, SUBCUTANEOUS USE
  67. ADALIMUMAB [Suspect]
     Active Substance: ADALIMUMAB
  68. DICLOFENAC POTASSIUM [Suspect]
     Active Substance: DICLOFENAC POTASSIUM
     Indication: Rheumatoid arthritis
  69. DICLOFENAC POTASSIUM [Suspect]
     Active Substance: DICLOFENAC POTASSIUM
  70. DICLOFENAC POTASSIUM [Suspect]
     Active Substance: DICLOFENAC POTASSIUM
  71. ENBREL [Suspect]
     Active Substance: ETANERCEPT
     Indication: Product used for unknown indication
  72. ENBREL [Suspect]
     Active Substance: ETANERCEPT
     Indication: Rheumatoid arthritis
  73. ENBREL [Suspect]
     Active Substance: ETANERCEPT
     Route: 050
  74. ENBREL [Suspect]
     Active Substance: ETANERCEPT
     Route: 050
  75. ENBREL [Suspect]
     Active Substance: ETANERCEPT
     Route: 050
  76. ENBREL [Suspect]
     Active Substance: ETANERCEPT
     Route: 050
  77. ENBREL [Suspect]
     Active Substance: ETANERCEPT
     Route: 050
  78. HAIR KERATIN AMINO ACIDS GOLD COMPLEX [Suspect]
     Active Substance: HAIR KERATIN AMINO ACIDS GOLD COMPLEX
     Indication: Product used for unknown indication
  79. HAIR KERATIN AMINO ACIDS GOLD COMPLEX [Suspect]
     Active Substance: HAIR KERATIN AMINO ACIDS GOLD COMPLEX
  80. THIAMINE HYDROCHLORIDE [Suspect]
     Active Substance: THIAMINE HYDROCHLORIDE
     Indication: Product used for unknown indication
  81. GOLD [Suspect]
     Active Substance: GOLD
     Indication: Product used for unknown indication
  82. GOLD [Suspect]
     Active Substance: GOLD
  83. METHOTREXATE [Suspect]
     Active Substance: METHOTREXATE
     Indication: Rheumatoid arthritis
     Route: 050
  84. METHOTREXATE [Suspect]
     Active Substance: METHOTREXATE
     Dosage: 15 MG, QW
     Route: 050
  85. METHOTREXATE [Suspect]
     Active Substance: METHOTREXATE
     Dosage: 15 MG, QW, SUBCUTANEOUS USE
  86. METHOTREXATE [Suspect]
     Active Substance: METHOTREXATE
  87. METHOTREXATE [Suspect]
     Active Substance: METHOTREXATE
     Route: 050
  88. METHOTREXATE [Suspect]
     Active Substance: METHOTREXATE
     Dosage: 20 MG, Q24H
     Route: 050
  89. METHOTREXATE [Suspect]
     Active Substance: METHOTREXATE
     Dosage: 50 MG, QW, SUBCUTANEOUS USE
  90. METHOTREXATE [Suspect]
     Active Substance: METHOTREXATE
  91. METHOTREXATE [Suspect]
     Active Substance: METHOTREXATE
     Route: 050
  92. METHOTREXATE [Suspect]
     Active Substance: METHOTREXATE
     Dosage: 20 MG, QW, SUBCUTANEOUS USE
  93. METHOTREXATE [Suspect]
     Active Substance: METHOTREXATE
     Route: 050
  94. METHOTREXATE [Suspect]
     Active Substance: METHOTREXATE
     Route: 050
  95. METHOTREXATE [Suspect]
     Active Substance: METHOTREXATE
     Dosage: 25 MG, QW
     Route: 050
  96. METHOTREXATE [Suspect]
     Active Substance: METHOTREXATE
     Dosage: 25 MG, QW
     Route: 050
  97. OXYCODONE [Suspect]
     Active Substance: OXYCODONE
     Indication: Product used for unknown indication
  98. OXYCODONE [Suspect]
     Active Substance: OXYCODONE
  99. ORENCIA [Suspect]
     Active Substance: ABATACEPT
     Indication: Rheumatoid arthritis
     Route: 050
  100. ORENCIA [Suspect]
     Active Substance: ABATACEPT
     Indication: Product used for unknown indication
     Route: 050
  101. ORENCIA [Suspect]
     Active Substance: ABATACEPT
     Route: 050
  102. ORENCIA [Suspect]
     Active Substance: ABATACEPT
  103. ORENCIA [Suspect]
     Active Substance: ABATACEPT
     Route: 050
  104. ORENCIA [Suspect]
     Active Substance: ABATACEPT
  105. ORENCIA [Suspect]
     Active Substance: ABATACEPT
  106. ORENCIA [Suspect]
     Active Substance: ABATACEPT
     Route: 050
  107. ORENCIA [Suspect]
     Active Substance: ABATACEPT
  108. ORENCIA [Suspect]
     Active Substance: ABATACEPT
  109. ORENCIA [Suspect]
     Active Substance: ABATACEPT
     Route: 050
  110. ORENCIA [Suspect]
     Active Substance: ABATACEPT
     Dosage: 125 MG, QW
     Route: 050
  111. ERELZI [Suspect]
     Active Substance: ETANERCEPT-SZZS
     Indication: Rheumatoid arthritis
  112. ERELZI [Suspect]
     Active Substance: ETANERCEPT-SZZS
  113. ISOPROPYL ALCOHOL [Suspect]
     Active Substance: ISOPROPYL ALCOHOL
     Indication: Product used for unknown indication
  114. ISOPROPYL ALCOHOL [Suspect]
     Active Substance: ISOPROPYL ALCOHOL
  115. NAPROXEN SODIUM [Suspect]
     Active Substance: NAPROXEN SODIUM
     Indication: Rheumatoid arthritis
     Dosage: 500 MG, Q12H
  116. IMURAN [Suspect]
     Active Substance: AZATHIOPRINE
     Indication: Product used for unknown indication
  117. IMURAN [Suspect]
     Active Substance: AZATHIOPRINE
  118. MYOCHRYSINE [Suspect]
     Active Substance: GOLD SODIUM THIOMALATE
     Indication: Rheumatoid arthritis
     Dosage: 1 DOSAGE FORM, Q24H, SOLUTION
     Route: 050
  119. PHTHALYLSULFATHIAZOLE [Suspect]
     Active Substance: PHTHALYLSULFATHIAZOLE
     Indication: Rheumatoid arthritis
     Dosage: 1000 MG, Q12H
  120. PHTHALYLSULFATHIAZOLE [Suspect]
     Active Substance: PHTHALYLSULFATHIAZOLE
     Indication: Product used for unknown indication
     Route: 050
  121. PHTHALYLSULFATHIAZOLE [Suspect]
     Active Substance: PHTHALYLSULFATHIAZOLE
     Route: 050
  122. PHTHALYLSULFATHIAZOLE [Suspect]
     Active Substance: PHTHALYLSULFATHIAZOLE
     Route: 050
  123. PHTHALYLSULFATHIAZOLE [Suspect]
     Active Substance: PHTHALYLSULFATHIAZOLE
     Route: 050
  124. FLUMETHASONE PIVALATE [Suspect]
     Active Substance: FLUMETHASONE PIVALATE
     Indication: Product used for unknown indication
     Route: 050
  125. FLUMETHASONE PIVALATE [Suspect]
     Active Substance: FLUMETHASONE PIVALATE
     Route: 050
  126. FLUMETHASONE PIVALATE [Suspect]
     Active Substance: FLUMETHASONE PIVALATE
  127. FLUMETHASONE PIVALATE [Suspect]
     Active Substance: FLUMETHASONE PIVALATE
  128. RANITIDINE HYDROCHLORIDE [Suspect]
     Active Substance: RANITIDINE HYDROCHLORIDE
     Indication: Product used for unknown indication
  129. RANITIDINE HYDROCHLORIDE [Suspect]
     Active Substance: RANITIDINE HYDROCHLORIDE
  130. CIMZIA [Suspect]
     Active Substance: CERTOLIZUMAB PEGOL
     Indication: Product used for unknown indication
     Route: 050
  131. CIMZIA [Suspect]
     Active Substance: CERTOLIZUMAB PEGOL
     Indication: Rheumatoid arthritis
     Route: 050
  132. CIMZIA [Suspect]
     Active Substance: CERTOLIZUMAB PEGOL
     Route: 050
  133. CIMZIA [Suspect]
     Active Substance: CERTOLIZUMAB PEGOL
     Route: 050
  134. CIMZIA [Suspect]
     Active Substance: CERTOLIZUMAB PEGOL
     Route: 050
  135. CIMZIA [Suspect]
     Active Substance: CERTOLIZUMAB PEGOL
     Route: 050
  136. CIMZIA [Suspect]
     Active Substance: CERTOLIZUMAB PEGOL
  137. CIMZIA [Suspect]
     Active Substance: CERTOLIZUMAB PEGOL
     Route: 050
  138. CIMZIA [Suspect]
     Active Substance: CERTOLIZUMAB PEGOL
  139. CIMZIA [Suspect]
     Active Substance: CERTOLIZUMAB PEGOL
     Route: 050
  140. LEFLUNOMIDE [Suspect]
     Active Substance: LEFLUNOMIDE
     Indication: Rheumatoid arthritis
  141. LEFLUNOMIDE [Suspect]
     Active Substance: LEFLUNOMIDE
     Indication: Product used for unknown indication
     Route: 050
  142. LEFLUNOMIDE [Suspect]
     Active Substance: LEFLUNOMIDE
  143. LEFLUNOMIDE [Suspect]
     Active Substance: LEFLUNOMIDE
     Route: 050
  144. LEFLUNOMIDE [Suspect]
     Active Substance: LEFLUNOMIDE
  145. LEFLUNOMIDE [Suspect]
     Active Substance: LEFLUNOMIDE
  146. RAMIPRIL [Suspect]
     Active Substance: RAMIPRIL
     Indication: Rheumatoid arthritis
  147. RAMIPRIL [Suspect]
     Active Substance: RAMIPRIL
  148. RAMIPRIL [Suspect]
     Active Substance: RAMIPRIL
     Route: 050
  149. RAMIPRIL [Suspect]
     Active Substance: RAMIPRIL
     Route: 050
  150. RAMIPRIL [Suspect]
     Active Substance: RAMIPRIL
     Route: 050
  151. RAMIPRIL [Suspect]
     Active Substance: RAMIPRIL
     Route: 050
  152. ACETAMINOPHEN [Suspect]
     Active Substance: ACETAMINOPHEN
     Indication: Rheumatoid arthritis
  153. ACETAMINOPHEN [Suspect]
     Active Substance: ACETAMINOPHEN
  154. ACETAMINOPHEN [Suspect]
     Active Substance: ACETAMINOPHEN
  155. ACETAMINOPHEN [Suspect]
     Active Substance: ACETAMINOPHEN
  156. GOLIMUMAB [Suspect]
     Active Substance: GOLIMUMAB
     Indication: Rheumatoid arthritis
  157. GOLIMUMAB [Suspect]
     Active Substance: GOLIMUMAB
  158. GOLIMUMAB [Suspect]
     Active Substance: GOLIMUMAB
  159. COSENTYX [Suspect]
     Active Substance: SECUKINUMAB
     Indication: Product used for unknown indication
  160. COSENTYX [Suspect]
     Active Substance: SECUKINUMAB
     Indication: Rheumatoid arthritis
  161. COSENTYX [Suspect]
     Active Substance: SECUKINUMAB
     Indication: Psoriatic arthropathy
  162. BUTRANS [Suspect]
     Active Substance: BUPRENORPHINE
     Indication: Product used for unknown indication
  163. BUTRANS [Suspect]
     Active Substance: BUPRENORPHINE
  164. OXYCODONE TEREPHTHALATE [Suspect]
     Active Substance: OXYCODONE TEREPHTHALATE
     Indication: Product used for unknown indication
  165. OXYCODONE TEREPHTHALATE [Suspect]
     Active Substance: OXYCODONE TEREPHTHALATE
  166. XELJANZ [Suspect]
     Active Substance: TOFACITINIB CITRATE
     Indication: Rheumatoid arthritis
     Dosage: 10 MG, QD
  167. XELJANZ [Suspect]
     Active Substance: TOFACITINIB CITRATE
  168. XELJANZ [Suspect]
     Active Substance: TOFACITINIB CITRATE
  169. XELJANZ [Suspect]
     Active Substance: TOFACITINIB CITRATE
     Dosage: 10 MG, QD (5 MG, BID)
     Route: 050
  170. XELJANZ [Suspect]
     Active Substance: TOFACITINIB CITRATE
  171. XELJANZ [Suspect]
     Active Substance: TOFACITINIB CITRATE
     Route: 050
  172. XELJANZ [Suspect]
     Active Substance: TOFACITINIB CITRATE
  173. XELJANZ [Suspect]
     Active Substance: TOFACITINIB CITRATE
     Dosage: 10 MG, QD (5 MG, BID)
     Route: 050
  174. XELJANZ [Suspect]
     Active Substance: TOFACITINIB CITRATE
  175. XELJANZ [Suspect]
     Active Substance: TOFACITINIB CITRATE
  176. XELJANZ [Suspect]
     Active Substance: TOFACITINIB CITRATE
  177. XELJANZ [Suspect]
     Active Substance: TOFACITINIB CITRATE
     Route: 050
  178. OTEZLA [Suspect]
     Active Substance: APREMILAST
     Indication: Rheumatoid arthritis
     Route: 050
  179. OTEZLA [Suspect]
     Active Substance: APREMILAST
     Route: 050
  180. RIBOFLAVIN [Suspect]
     Active Substance: RIBOFLAVIN
     Indication: Product used for unknown indication
  181. NAPROXEN [Concomitant]
     Active Substance: NAPROXEN
     Indication: Product used for unknown indication
  182. NAPROXEN [Concomitant]
     Active Substance: NAPROXEN
  183. DOMPERIDONE MALEATE [Suspect]
     Active Substance: DOMPERIDONE MALEATE
     Indication: Product used for unknown indication
  184. DOMPERIDONE MALEATE [Suspect]
     Active Substance: DOMPERIDONE MALEATE
  185. FLUMETHASONE [Suspect]
     Active Substance: FLUMETHASONE
     Indication: Product used for unknown indication
  186. FLUMETHASONE [Suspect]
     Active Substance: FLUMETHASONE
  187. NUCALA [Suspect]
     Active Substance: MEPOLIZUMAB
     Indication: Product used for unknown indication
  188. NUCALA [Suspect]
     Active Substance: MEPOLIZUMAB
  189. SULFASALAZINE [Suspect]
     Active Substance: SULFASALAZINE
     Indication: Rheumatoid arthritis
     Route: 050
  190. SULFASALAZINE [Suspect]
     Active Substance: SULFASALAZINE
     Route: 050
  191. PERIOGARD [Suspect]
     Active Substance: CHLORHEXIDINE GLUCONATE
     Indication: Product used for unknown indication
  192. PERIOGARD [Suspect]
     Active Substance: CHLORHEXIDINE GLUCONATE
  193. PERIOGARD [Suspect]
     Active Substance: CHLORHEXIDINE GLUCONATE
  194. PERIOGARD [Suspect]
     Active Substance: CHLORHEXIDINE GLUCONATE
  195. CETIRIZINE HYDROCHLORIDE\PSEUDOEPHEDRINE HYDROCHLORIDE [Suspect]
     Active Substance: CETIRIZINE HYDROCHLORIDE\PSEUDOEPHEDRINE HYDROCHLORIDE
     Indication: Rheumatoid arthritis
  196. CETIRIZINE HYDROCHLORIDE\PSEUDOEPHEDRINE HYDROCHLORIDE [Suspect]
     Active Substance: CETIRIZINE HYDROCHLORIDE\PSEUDOEPHEDRINE HYDROCHLORIDE
     Route: 050
  197. CETIRIZINE HYDROCHLORIDE\PSEUDOEPHEDRINE HYDROCHLORIDE [Suspect]
     Active Substance: CETIRIZINE HYDROCHLORIDE\PSEUDOEPHEDRINE HYDROCHLORIDE
  198. CETIRIZINE HYDROCHLORIDE\PSEUDOEPHEDRINE HYDROCHLORIDE [Suspect]
     Active Substance: CETIRIZINE HYDROCHLORIDE\PSEUDOEPHEDRINE HYDROCHLORIDE
     Route: 050
  199. CETIRIZINE HYDROCHLORIDE\PSEUDOEPHEDRINE HYDROCHLORIDE [Suspect]
     Active Substance: CETIRIZINE HYDROCHLORIDE\PSEUDOEPHEDRINE HYDROCHLORIDE
  200. CETIRIZINE HYDROCHLORIDE\PSEUDOEPHEDRINE HYDROCHLORIDE [Suspect]
     Active Substance: CETIRIZINE HYDROCHLORIDE\PSEUDOEPHEDRINE HYDROCHLORIDE
  201. MYRBETRIQ [Suspect]
     Active Substance: MIRABEGRON
     Indication: Product used for unknown indication
     Dosage: 1 DOSAGE FORM, Q24H
  202. MYRBETRIQ [Suspect]
     Active Substance: MIRABEGRON
  203. AIMOVIG [Suspect]
     Active Substance: ERENUMAB-AOOE
     Indication: Product used for unknown indication
  204. AIMOVIG [Suspect]
     Active Substance: ERENUMAB-AOOE
     Indication: Migraine
  205. NICOTINAMIDE [Suspect]
     Active Substance: NIACINAMIDE
     Indication: Product used for unknown indication
  206. BERINERT [Suspect]
     Active Substance: HUMAN C1-ESTERASE INHIBITOR
     Indication: Product used for unknown indication
  207. BERINERT [Suspect]
     Active Substance: HUMAN C1-ESTERASE INHIBITOR
  208. GOLD SODIUM THIOMALATE [Suspect]
     Active Substance: GOLD SODIUM THIOMALATE
     Indication: Product used for unknown indication
     Route: 050
  209. GOLD SODIUM THIOMALATE [Suspect]
     Active Substance: GOLD SODIUM THIOMALATE
     Route: 050
  210. GOLD SODIUM THIOMALATE [Suspect]
     Active Substance: GOLD SODIUM THIOMALATE
     Route: 050
  211. GOLD SODIUM THIOMALATE [Suspect]
     Active Substance: GOLD SODIUM THIOMALATE
     Route: 050
  212. APREMILAST [Suspect]
     Active Substance: APREMILAST
     Indication: Product used for unknown indication
  213. APREMILAST [Suspect]
     Active Substance: APREMILAST
  214. APREMILAST [Suspect]
     Active Substance: APREMILAST
     Dosage: 3 MG, Q12H
  215. APREMILAST [Suspect]
     Active Substance: APREMILAST
     Dosage: 30 MG, Q12H
  216. RANITIDINE [Suspect]
     Active Substance: RANITIDINE
     Indication: Product used for unknown indication
  217. RANITIDINE [Suspect]
     Active Substance: RANITIDINE
  218. DESOGESTREL\ETHINYL ESTRADIOL [Concomitant]
     Active Substance: DESOGESTREL\ETHINYL ESTRADIOL
     Indication: Product used for unknown indication
  219. DESOGESTREL\ETHINYL ESTRADIOL [Concomitant]
     Active Substance: DESOGESTREL\ETHINYL ESTRADIOL
  220. HYDROCORTISONE BUTYRATE [Suspect]
     Active Substance: HYDROCORTISONE BUTYRATE
     Indication: Product used for unknown indication
  221. HYDROCORTISONE BUTYRATE [Suspect]
     Active Substance: HYDROCORTISONE BUTYRATE
  222. FOSAMAX [Suspect]
     Active Substance: ALENDRONATE SODIUM
     Indication: Rheumatoid arthritis
     Route: 050
  223. FOSAMAX [Suspect]
     Active Substance: ALENDRONATE SODIUM
     Indication: Product used for unknown indication
     Route: 050
  224. FOSAMAX [Suspect]
     Active Substance: ALENDRONATE SODIUM
     Route: 050
  225. FOSAMAX [Suspect]
     Active Substance: ALENDRONATE SODIUM
     Route: 050
  226. FOSAMAX [Suspect]
     Active Substance: ALENDRONATE SODIUM
     Route: 050
  227. FOSAMAX [Suspect]
     Active Substance: ALENDRONATE SODIUM
     Route: 050
  228. FOSAMAX [Suspect]
     Active Substance: ALENDRONATE SODIUM
     Route: 050
  229. FOSAMAX [Suspect]
     Active Substance: ALENDRONATE SODIUM
     Route: 050
  230. CALCIUM GLUBIONATE [Suspect]
     Active Substance: CALCIUM GLUBIONATE
     Indication: Product used for unknown indication
     Route: 050
  231. CALCIUM GLUBIONATE [Suspect]
     Active Substance: CALCIUM GLUBIONATE
     Route: 050
  232. NAPROSYN [Suspect]
     Active Substance: NAPROXEN
     Indication: Product used for unknown indication
  233. NAPROSYN [Suspect]
     Active Substance: NAPROXEN
  234. CERTOLIZUMAB PEGOL [Suspect]
     Active Substance: CERTOLIZUMAB PEGOL
     Indication: Rheumatoid arthritis
  235. CERTOLIZUMAB PEGOL [Suspect]
     Active Substance: CERTOLIZUMAB PEGOL
     Indication: Product used for unknown indication
     Route: 050
  236. CERTOLIZUMAB PEGOL [Suspect]
     Active Substance: CERTOLIZUMAB PEGOL
     Route: 050
  237. CERTOLIZUMAB PEGOL [Suspect]
     Active Substance: CERTOLIZUMAB PEGOL
     Route: 050
  238. CERTOLIZUMAB PEGOL [Suspect]
     Active Substance: CERTOLIZUMAB PEGOL
  239. CERTOLIZUMAB PEGOL [Suspect]
     Active Substance: CERTOLIZUMAB PEGOL
     Route: 050
  240. CERTOLIZUMAB PEGOL [Suspect]
     Active Substance: CERTOLIZUMAB PEGOL
     Route: 050
  241. STELARA [Suspect]
     Active Substance: USTEKINUMAB
     Indication: Rheumatoid arthritis
     Route: 050
  242. STELARA [Suspect]
     Active Substance: USTEKINUMAB
     Route: 050
  243. STELARA [Suspect]
     Active Substance: USTEKINUMAB
     Route: 050
  244. ACETAMINOPHEN AND CODEINE [Suspect]
     Active Substance: ACETAMINOPHEN\CODEINE PHOSPHATE
     Indication: Product used for unknown indication
  245. ACETAMINOPHEN AND CODEINE [Suspect]
     Active Substance: ACETAMINOPHEN\CODEINE PHOSPHATE
  246. PSEUDOEPHEDRINE [Suspect]
     Active Substance: PSEUDOEPHEDRINE
     Indication: Product used for unknown indication
  247. PSEUDOEPHEDRINE [Suspect]
     Active Substance: PSEUDOEPHEDRINE
  248. PSEUDOEPHEDRINE [Suspect]
     Active Substance: PSEUDOEPHEDRINE
  249. PSEUDOEPHEDRINE [Suspect]
     Active Substance: PSEUDOEPHEDRINE
  250. PSEUDOEPHEDRINE [Suspect]
     Active Substance: PSEUDOEPHEDRINE
  251. PSEUDOEPHEDRINE [Suspect]
     Active Substance: PSEUDOEPHEDRINE
  252. ERGOCALCIFEROL [Suspect]
     Active Substance: ERGOCALCIFEROL
     Indication: Rheumatoid arthritis
  253. TRAMADOL HYDROCHLORIDE [Suspect]
     Active Substance: TRAMADOL HYDROCHLORIDE
     Indication: Product used for unknown indication
  254. TRAMADOL HYDROCHLORIDE [Suspect]
     Active Substance: TRAMADOL HYDROCHLORIDE
  255. PHENYLEPHRINE HYDROCHLORIDE [Suspect]
     Active Substance: PHENYLEPHRINE HYDROCHLORIDE
     Indication: Rheumatoid arthritis
  256. HYDROXYCHLOROQUINE SULFATE [Suspect]
     Active Substance: HYDROXYCHLOROQUINE SULFATE
     Indication: Product used for unknown indication
     Dosage: 200 MG, QD
  257. HYDROXYCHLOROQUINE SULFATE [Suspect]
     Active Substance: HYDROXYCHLOROQUINE SULFATE
     Indication: Rheumatoid arthritis
     Dosage: 400 MG, QD
  258. HYDROXYCHLOROQUINE SULFATE [Suspect]
     Active Substance: HYDROXYCHLOROQUINE SULFATE
     Dosage: 600 MG, QD
     Route: 050
  259. HYDROXYCHLOROQUINE SULFATE [Suspect]
     Active Substance: HYDROXYCHLOROQUINE SULFATE
     Dosage: 20 MG, QD
     Route: 050
  260. HYDROXYCHLOROQUINE SULFATE [Suspect]
     Active Substance: HYDROXYCHLOROQUINE SULFATE
     Dosage: 400 MG
     Route: 050
  261. HYDROXYCHLOROQUINE SULFATE [Suspect]
     Active Substance: HYDROXYCHLOROQUINE SULFATE
     Dosage: UNK, QD
  262. ACTEMRA [Suspect]
     Active Substance: TOCILIZUMAB
     Indication: Product used for unknown indication
     Route: 050
  263. ACTEMRA [Suspect]
     Active Substance: TOCILIZUMAB
     Indication: Rheumatoid arthritis
     Route: 050
  264. ACTEMRA [Suspect]
     Active Substance: TOCILIZUMAB
  265. ACTEMRA [Suspect]
     Active Substance: TOCILIZUMAB
  266. ACTEMRA [Suspect]
     Active Substance: TOCILIZUMAB
     Route: 050
  267. ARAVA [Suspect]
     Active Substance: LEFLUNOMIDE
     Indication: Rheumatoid arthritis
     Route: 050
  268. ARAVA [Suspect]
     Active Substance: LEFLUNOMIDE
     Indication: Product used for unknown indication
  269. ARAVA [Suspect]
     Active Substance: LEFLUNOMIDE
  270. ARAVA [Suspect]
     Active Substance: LEFLUNOMIDE
  271. ARAVA [Suspect]
     Active Substance: LEFLUNOMIDE
  272. RITUXIMAB [Suspect]
     Active Substance: RITUXIMAB
     Indication: Rheumatoid arthritis
     Route: 050
  273. RITUXIMAB [Suspect]
     Active Substance: RITUXIMAB
     Route: 050
  274. RITUXIMAB [Suspect]
     Active Substance: RITUXIMAB
  275. RITUXIMAB [Suspect]
     Active Substance: RITUXIMAB
     Dosage: 2000 MG, QD
  276. RITUXIMAB [Suspect]
     Active Substance: RITUXIMAB
     Route: 050
  277. RITUXIMAB [Suspect]
     Active Substance: RITUXIMAB
     Route: 050
  278. RITUXIMAB [Suspect]
     Active Substance: RITUXIMAB
  279. RITUXIMAB [Suspect]
     Active Substance: RITUXIMAB
     Route: 050
  280. RITUXIMAB [Suspect]
     Active Substance: RITUXIMAB
  281. RITUXIMAB [Suspect]
     Active Substance: RITUXIMAB
     Route: 050
  282. RITUXIMAB [Suspect]
     Active Substance: RITUXIMAB
     Route: 050
  283. RITUXIMAB [Suspect]
     Active Substance: RITUXIMAB
     Route: 050
  284. RITUXIMAB [Suspect]
     Active Substance: RITUXIMAB
     Route: 050
  285. RITUXIMAB [Suspect]
     Active Substance: RITUXIMAB
  286. RITUXIMAB [Suspect]
     Active Substance: RITUXIMAB
     Route: 050
  287. TOPIRAMATE [Suspect]
     Active Substance: TOPIRAMATE
     Indication: Migraine
     Dosage: 25 MG, QD
  288. TOPIRAMATE [Suspect]
     Active Substance: TOPIRAMATE
  289. TOPIRAMATE [Suspect]
     Active Substance: TOPIRAMATE
     Dosage: 3 MG, QD
  290. HUMIRA [Suspect]
     Active Substance: ADALIMUMAB
     Indication: Product used for unknown indication
  291. HUMIRA [Suspect]
     Active Substance: ADALIMUMAB
     Indication: Rheumatoid arthritis
  292. HUMIRA [Suspect]
     Active Substance: ADALIMUMAB
     Route: 050
  293. HUMIRA [Suspect]
     Active Substance: ADALIMUMAB
  294. HUMIRA [Suspect]
     Active Substance: ADALIMUMAB
  295. HUMIRA [Suspect]
     Active Substance: ADALIMUMAB
  296. ALENDRONATE SODIUM [Suspect]
     Active Substance: ALENDRONATE SODIUM
     Indication: Rheumatoid arthritis
     Route: 050
  297. ALENDRONATE SODIUM [Suspect]
     Active Substance: ALENDRONATE SODIUM
     Route: 050
  298. ALENDRONATE SODIUM [Suspect]
     Active Substance: ALENDRONATE SODIUM
     Route: 050
  299. ALENDRONATE SODIUM [Suspect]
     Active Substance: ALENDRONATE SODIUM
  300. ALENDRONATE SODIUM [Suspect]
     Active Substance: ALENDRONATE SODIUM
  301. ALENDRONATE SODIUM [Suspect]
     Active Substance: ALENDRONATE SODIUM
     Route: 050
  302. ALENDRONATE SODIUM [Suspect]
     Active Substance: ALENDRONATE SODIUM
  303. ALENDRONATE SODIUM [Suspect]
     Active Substance: ALENDRONATE SODIUM
     Route: 050
  304. ALENDRONATE SODIUM [Suspect]
     Active Substance: ALENDRONATE SODIUM
  305. ALENDRONATE SODIUM [Suspect]
     Active Substance: ALENDRONATE SODIUM
  306. ALENDRONATE SODIUM [Suspect]
     Active Substance: ALENDRONATE SODIUM
     Route: 050
  307. ALENDRONATE SODIUM [Suspect]
     Active Substance: ALENDRONATE SODIUM
  308. SIMPONI [Suspect]
     Active Substance: GOLIMUMAB
     Indication: Rheumatoid arthritis
     Route: 050
  309. SIMPONI [Suspect]
     Active Substance: GOLIMUMAB
     Route: 050
  310. SIMPONI [Suspect]
     Active Substance: GOLIMUMAB
     Route: 050
  311. SIMPONI [Suspect]
     Active Substance: GOLIMUMAB
     Route: 050
  312. SIMPONI [Suspect]
     Active Substance: GOLIMUMAB
     Route: 050
  313. SIMPONI [Suspect]
     Active Substance: GOLIMUMAB
     Route: 050
  314. SIMPONI [Suspect]
     Active Substance: GOLIMUMAB
     Route: 050
  315. TRIAMCINOLONE ACETONIDE [Suspect]
     Active Substance: TRIAMCINOLONE ACETONIDE
     Indication: Rheumatoid arthritis
     Route: 050
  316. TRIAMCINOLONE ACETONIDE [Suspect]
     Active Substance: TRIAMCINOLONE ACETONIDE
     Route: 050
  317. TRIAMCINOLONE ACETONIDE [Suspect]
     Active Substance: TRIAMCINOLONE ACETONIDE
     Route: 050
  318. TRIAMCINOLONE ACETONIDE [Suspect]
     Active Substance: TRIAMCINOLONE ACETONIDE
     Route: 050
  319. SULFASALAZINE [Suspect]
     Active Substance: SULFASALAZINE
     Indication: Rheumatoid arthritis
     Route: 050
  320. SULFASALAZINE [Suspect]
     Active Substance: SULFASALAZINE
     Route: 050
  321. SULFASALAZINE [Suspect]
     Active Substance: SULFASALAZINE
     Dosage: 2 G, QD
  322. SULFASALAZINE [Suspect]
     Active Substance: SULFASALAZINE
     Route: 050
  323. SULFASALAZINE [Suspect]
     Active Substance: SULFASALAZINE
     Dosage: 2000 MG, QD (1000 MG, BID (1 EVERY 12 HOURS))
  324. SULFASALAZINE [Suspect]
     Active Substance: SULFASALAZINE
  325. SULFASALAZINE [Suspect]
     Active Substance: SULFASALAZINE
  326. SULFASALAZINE [Suspect]
     Active Substance: SULFASALAZINE
     Dosage: 1 G, QD
  327. SULFASALAZINE [Suspect]
     Active Substance: SULFASALAZINE
     Dosage: UNK, BID (1 EVERY 12 HOURS)
     Route: 050
  328. SULFASALAZINE [Suspect]
     Active Substance: SULFASALAZINE
     Route: 050
  329. SULFASALAZINE [Suspect]
     Active Substance: SULFASALAZINE
     Route: 050
  330. SULFASALAZINE [Suspect]
     Active Substance: SULFASALAZINE
     Route: 050
  331. SULFASALAZINE [Suspect]
     Active Substance: SULFASALAZINE
     Route: 050
  332. SULFASALAZINE [Suspect]
     Active Substance: SULFASALAZINE
     Route: 050
  333. SULFASALAZINE [Suspect]
     Active Substance: SULFASALAZINE
  334. SULFASALAZINE [Suspect]
     Active Substance: SULFASALAZINE
     Route: 050
  335. SULFASALAZINE [Suspect]
     Active Substance: SULFASALAZINE
     Route: 050
  336. SULFASALAZINE [Suspect]
     Active Substance: SULFASALAZINE
  337. SULFASALAZINE [Suspect]
     Active Substance: SULFASALAZINE
     Dosage: 2 DOSAGE FORM, QD (1 DF, BID)
     Route: 050
  338. SULFASALAZINE [Suspect]
     Active Substance: SULFASALAZINE
     Route: 050
  339. SULFASALAZINE [Suspect]
     Active Substance: SULFASALAZINE
     Route: 050
  340. SULFASALAZINE [Suspect]
     Active Substance: SULFASALAZINE
     Dosage: 4 MG, QD (2 MG, BID)
  341. SULFASALAZINE [Suspect]
     Active Substance: SULFASALAZINE
  342. SULFASALAZINE [Suspect]
     Active Substance: SULFASALAZINE
     Dosage: 300 MG, QD
  343. SULFASALAZINE [Suspect]
     Active Substance: SULFASALAZINE
     Route: 050
  344. DICLOFENAC SODIUM [Suspect]
     Active Substance: DICLOFENAC SODIUM
     Indication: Product used for unknown indication
  345. DICLOFENAC SODIUM [Suspect]
     Active Substance: DICLOFENAC SODIUM
  346. DICLOFENAC SODIUM [Suspect]
     Active Substance: DICLOFENAC SODIUM
  347. DICLOFENAC SODIUM [Suspect]
     Active Substance: DICLOFENAC SODIUM
  348. DICLOFENAC SODIUM [Suspect]
     Active Substance: DICLOFENAC SODIUM
  349. PREDNISONE [Suspect]
     Active Substance: PREDNISONE
     Indication: Rheumatoid arthritis
     Dosage: 50 MG, Q24H
     Route: 050
  350. PREDNISONE [Suspect]
     Active Substance: PREDNISONE
     Indication: Product used for unknown indication
  351. PREDNISONE [Suspect]
     Active Substance: PREDNISONE
  352. PREDNISONE [Suspect]
     Active Substance: PREDNISONE
     Dosage: UNK, Q24H
     Route: 050
  353. PREDNISONE [Suspect]
     Active Substance: PREDNISONE
     Dosage: 50 MG, Q24H
     Route: 050
  354. PREDNISONE [Suspect]
     Active Substance: PREDNISONE
     Route: 050
  355. PREDNISONE [Suspect]
     Active Substance: PREDNISONE
     Route: 050
  356. LEFLUNOMIDE [Suspect]
     Active Substance: LEFLUNOMIDE
     Indication: Rheumatoid arthritis
  357. LEFLUNOMIDE [Suspect]
     Active Substance: LEFLUNOMIDE
     Indication: Product used for unknown indication
  358. LEFLUNOMIDE [Suspect]
     Active Substance: LEFLUNOMIDE
     Dosage: 10 MG, Q24H
     Route: 050
  359. LEFLUNOMIDE [Suspect]
     Active Substance: LEFLUNOMIDE
  360. BOTULINUM TOXIN TYPE A [Suspect]
     Active Substance: BOTULINUM TOXIN TYPE A
     Indication: Product used for unknown indication
  361. BOTULINUM TOXIN TYPE A [Suspect]
     Active Substance: BOTULINUM TOXIN TYPE A
  362. PREDNISONE [Suspect]
     Active Substance: PREDNISONE
     Indication: Rheumatoid arthritis
  363. PREDNISONE [Suspect]
     Active Substance: PREDNISONE
  364. PREDNISONE [Suspect]
     Active Substance: PREDNISONE
     Dosage: 50 MG, QD
     Route: 050
  365. PREDNISONE [Suspect]
     Active Substance: PREDNISONE
  366. PREDNISONE [Suspect]
     Active Substance: PREDNISONE
  367. PREDNISONE [Suspect]
     Active Substance: PREDNISONE
  368. PREDNISONE [Suspect]
     Active Substance: PREDNISONE
     Dosage: UNK, QD
  369. PREDNISONE [Suspect]
     Active Substance: PREDNISONE
     Dosage: 5 MG, QD
     Route: 050
  370. CANDESARTAN [Suspect]
     Active Substance: CANDESARTAN
     Indication: Migraine
     Route: 050
  371. CANDESARTAN [Suspect]
     Active Substance: CANDESARTAN
     Route: 050
  372. SIRUKUMAB [Suspect]
     Active Substance: SIRUKUMAB
     Indication: Product used for unknown indication
  373. SIRUKUMAB [Suspect]
     Active Substance: SIRUKUMAB
  374. ATOMOXETINE [Suspect]
     Active Substance: ATOMOXETINE
     Indication: Migraine
  375. ATOMOXETINE [Suspect]
     Active Substance: ATOMOXETINE
  376. LAMICTAL [Suspect]
     Active Substance: LAMOTRIGINE
     Indication: Product used for unknown indication
     Route: 050
  377. LAMICTAL [Suspect]
     Active Substance: LAMOTRIGINE
     Route: 050
  378. LAMICTAL [Suspect]
     Active Substance: LAMOTRIGINE
     Route: 050
  379. LAMICTAL [Suspect]
     Active Substance: LAMOTRIGINE
     Route: 050
  380. KEVZARA [Suspect]
     Active Substance: SARILUMAB
     Indication: Product used for unknown indication
  381. KEVZARA [Suspect]
     Active Substance: SARILUMAB
  382. SULFAMETHOXAZOLE\TRIMETHOPRIM [Suspect]
     Active Substance: SULFAMETHOXAZOLE\TRIMETHOPRIM
     Indication: Product used for unknown indication
  383. SULFAMETHOXAZOLE\TRIMETHOPRIM [Suspect]
     Active Substance: SULFAMETHOXAZOLE\TRIMETHOPRIM

REACTIONS (12)
  - Hepatitis [Fatal]
  - Hepatic enzyme increased [Fatal]
  - Grip strength decreased [Fatal]
  - Hand deformity [Fatal]
  - Hypersensitivity [Fatal]
  - Helicobacter infection [Fatal]
  - Hypertension [Fatal]
  - Headache [Fatal]
  - Hypoaesthesia [Fatal]
  - Hypercholesterolaemia [Fatal]
  - Glossodynia [Fatal]
  - Ill-defined disorder [Fatal]
